FAERS Safety Report 13472792 (Version 1)
Quarter: 2017Q2

REPORT INFORMATION
  Report Type: Spontaneous
  Country: DK (occurrence: DK)
  Receive Date: 20170424
  Receipt Date: 20170424
  Transmission Date: 20170830
  Serious: Yes (Other)
  Sender: FDA-Public Use
  Company Number: DK-CHARTWELL PHARMA-1065767

PATIENT
  Age: 73 Year
  Sex: Male

DRUGS (1)
  1. NAPROXEN. [Suspect]
     Active Substance: NAPROXEN

REACTIONS (1)
  - Pseudoporphyria [Recovered/Resolved]
